FAERS Safety Report 8460798-2 (Version None)
Quarter: 2012Q2

REPORT INFORMATION
  Report Type: 
  Country: None (occurrence: None)
  Receive Date: 20120623
  Receipt Date: 20120612
  Transmission Date: 20120825
  Serious: Yes (Death)
  Sender: FDA-Public Use
  Company Number: JP-TEVA-344005ISR

PATIENT
  Sex: Male

DRUGS (2)
  1. CEFTRIAXONE [Suspect]
  2. LEVOFLOXACIN [Suspect]
     Dosage: 1000 MILLIGRAM;

REACTIONS (1)
  - TOXIC EPIDERMAL NECROLYSIS [None]
